FAERS Safety Report 19871422 (Version 1)
Quarter: 2021Q3

REPORT INFORMATION
  Report Type: Report from Study
  Country: IT (occurrence: IT)
  Receive Date: 20210923
  Receipt Date: 20210923
  Transmission Date: 20211014
  Serious: Yes (Hospitalization, Other)
  Sender: FDA-Public Use
  Company Number: IT-ALS-000409

PATIENT
  Age: 69 Year
  Sex: Female

DRUGS (1)
  1. METFORMIN [Suspect]
     Active Substance: METFORMIN HYDROCHLORIDE
     Indication: TYPE 2 DIABETES MELLITUS
     Route: 048

REACTIONS (19)
  - Asthenia [Unknown]
  - Renal failure [Unknown]
  - Primary amyloidosis [Unknown]
  - Diarrhoea [Unknown]
  - Normochromic normocytic anaemia [Unknown]
  - Hyperkalaemia [Unknown]
  - Pain in extremity [Unknown]
  - Dehydration [Unknown]
  - Anuria [Unknown]
  - Glomerulonephritis membranoproliferative [Unknown]
  - Arterial fibrosis [Unknown]
  - Malaise [Unknown]
  - Metabolic acidosis [Unknown]
  - Haemodialysis [Unknown]
  - Proteinuria [Unknown]
  - Arteriosclerosis [Unknown]
  - Diabetic nephropathy [Unknown]
  - Type III immune complex mediated reaction [Unknown]
  - Myeloma cast nephropathy [Unknown]
